FAERS Safety Report 5500101-0 (Version None)
Quarter: 2007Q4

REPORT INFORMATION
  Report Type: 
  Country: None (occurrence: None)
  Receive Date: 20071024
  Receipt Date: 20071015
  Transmission Date: 20080405
  Serious: Yes (Other)
  Sender: FDA-Public Use
  Company Number: 2007SP020827

PATIENT
  Age: 48 Year

DRUGS (1)
  1. INTRON A [Suspect]
     Indication: MALIGNANT MELANOMA

REACTIONS (9)
  - HALLUCINATION [None]
  - HEPATIC ENZYME INCREASED [None]
  - HEPATITIS [None]
  - HEPATOMEGALY [None]
  - HYPOACUSIS [None]
  - NAUSEA [None]
  - SENSORY DISTURBANCE [None]
  - TINNITUS [None]
  - VASCULITIS [None]
